FAERS Safety Report 12598969 (Version 1)
Quarter: 2016Q3

REPORT INFORMATION
  Report Type: Spontaneous
  Country: US (occurrence: US)
  Receive Date: 20160726
  Receipt Date: 20160726
  Transmission Date: 20161109
  Serious: Yes (Hospitalization, Other)
  Sender: FDA-Public Use
  Company Number: US-JNJFOC-20160712816

PATIENT

DRUGS (2)
  1. PHENYLEPHRINE HYDROCHLORIDE. [Suspect]
     Active Substance: PHENYLEPHRINE HYDROCHLORIDE
     Indication: LABILE BLOOD PRESSURE
     Route: 065
  2. DOPAMINE [Suspect]
     Active Substance: DOPAMINE\DOPAMINE HYDROCHLORIDE
     Indication: LABILE BLOOD PRESSURE
     Route: 065

REACTIONS (12)
  - Ventricular tachycardia [Unknown]
  - Pneumonia [Unknown]
  - Tracheostomy [Unknown]
  - Atrial fibrillation [Unknown]
  - Bradycardia [Unknown]
  - Respiratory failure [Unknown]
  - Gastrostomy [Unknown]
  - Off label use [Unknown]
  - Troponin increased [Unknown]
  - Urinary tract infection [Unknown]
  - Product use issue [Unknown]
  - Tachycardia [Unknown]
